FAERS Safety Report 24572539 (Version 1)
Quarter: 2024Q4

REPORT INFORMATION
  Report Type: Spontaneous
  Country: US (occurrence: None)
  Receive Date: 20241101
  Receipt Date: 20241101
  Transmission Date: 20250115
  Serious: Yes (Other)
  Sender: Public
  Company Number: None

PATIENT
  Age: 68 Year
  Sex: Male

DRUGS (1)
  1. SILDENAFIL [Suspect]
     Active Substance: SILDENAFIL
     Indication: Erectile dysfunction
     Dosage: OTHER FREQUENCY : AS NEEDED;?
     Route: 048

REACTIONS (2)
  - Photophobia [None]
  - Vision blurred [None]

NARRATIVE: CASE EVENT DATE: 20241031
